FAERS Safety Report 12428036 (Version 1)
Quarter: 2016Q2

REPORT INFORMATION
  Report Type: Spontaneous
  Country: US (occurrence: US)
  Receive Date: 20160602
  Receipt Date: 20160602
  Transmission Date: 20160815
  Serious: No
  Sender: FDA-Public Use
  Company Number: US-BAYER-2016-108027

PATIENT
  Age: 74 Year
  Sex: Female
  Weight: 62.13 kg

DRUGS (2)
  1. DULCOLAX (DOCUSATE SODIUM) [Concomitant]
     Active Substance: DOCUSATE SODIUM
     Dosage: 3 DF, UNK
  2. MIRALAX [Suspect]
     Active Substance: POLYETHYLENE GLYCOL 3350
     Indication: COLONOSCOPY
     Dosage: 14 DF, DRINK 8 OUNCES EVERY 20-30 MINUTES
     Route: 048

REACTIONS (2)
  - Circumstance or information capable of leading to medication error [None]
  - Drug prescribing error [None]
